FAERS Safety Report 23713814 (Version 3)
Quarter: 2024Q2

REPORT INFORMATION
  Report Type: Report from Study
  Country: US (occurrence: US)
  Receive Date: 20240405
  Receipt Date: 20240528
  Transmission Date: 20240716
  Serious: Yes (Hospitalization, Other)
  Sender: FDA-Public Use
  Company Number: US-ALNYLAM PHARMACEUTICALS, INC.-ALN-2024-001792

PATIENT

DRUGS (1)
  1. GIVLAARI [Suspect]
     Active Substance: GIVOSIRAN SODIUM
     Indication: Porphyria acute
     Dosage: 114.5 MILLIGRAM, MONTHLY
     Route: 058
     Dates: start: 20220728, end: 20220728

REACTIONS (15)
  - Renal failure [Unknown]
  - Liver disorder [Unknown]
  - Dehydration [Unknown]
  - Hospitalisation [Not Recovered/Not Resolved]
  - Hallucination [Not Recovered/Not Resolved]
  - Therapy interrupted [Unknown]
  - Gait disturbance [Unknown]
  - Peripheral swelling [Unknown]
  - Decreased appetite [Unknown]
  - Malaise [Unknown]
  - Nausea [Not Recovered/Not Resolved]
  - Vomiting [Not Recovered/Not Resolved]
  - Confusional state [Not Recovered/Not Resolved]
  - Pain [Not Recovered/Not Resolved]
  - Unevaluable event [Not Recovered/Not Resolved]

NARRATIVE: CASE EVENT DATE: 20240201
